FAERS Safety Report 10173854 (Version 1)
Quarter: 2014Q2

REPORT INFORMATION
  Report Type: Spontaneous
  Country: US (occurrence: None)
  Receive Date: 20140513
  Receipt Date: 20140513
  Transmission Date: 20141212
  Serious: Yes (Hospitalization, Other)
  Sender: FDA-Public Use
  Company Number: 2014040095

PATIENT
  Age: 46 Year
  Sex: Female

DRUGS (4)
  1. SOMA [Suspect]
     Indication: PAIN
     Dates: start: 2011
  2. XANAX (ALPRAZOLAM) [Suspect]
     Indication: PAIN
     Dates: start: 2011
  3. ROXICODONE (OXYCODONE HYDROCHLORIDE) (TABLETS) [Suspect]
     Indication: PAIN
     Dates: start: 2011
  4. OXYCONTIN (OXYCODONE HYDROCHLORIDE) [Suspect]
     Indication: PAIN
     Dates: start: 2011

REACTIONS (2)
  - Substance abuse [None]
  - Legal problem [None]
